FAERS Safety Report 15014323 (Version 1)
Quarter: 2018Q2

REPORT INFORMATION
  Report Type: Spontaneous
  Country: TW (occurrence: TW)
  Receive Date: 20180615
  Receipt Date: 20180615
  Transmission Date: 20180711
  Serious: Yes (Hospitalization, Other)
  Sender: FDA-Public Use
  Company Number: TW-MACLEODS PHARMACEUTICALS US LTD-MAC2018014245

PATIENT

DRUGS (3)
  1. VALPROIC ACID. [Concomitant]
     Active Substance: VALPROIC ACID
     Indication: BIPOLAR I DISORDER
     Dosage: 1000 MILLIGRAM, QD, 24 HOUR
     Route: 065
     Dates: start: 2016
  2. QUETIAPINE 400 MG [Suspect]
     Active Substance: QUETIAPINE
     Dosage: 200 MILLIGRAM, QD, 24 HOUR
     Route: 065
     Dates: start: 2016
  3. QUETIAPINE 400 MG [Suspect]
     Active Substance: QUETIAPINE
     Indication: BIPOLAR I DISORDER
     Dosage: 400 MILLIGRAM, QD, 24 HOUR
     Route: 065
     Dates: start: 2016

REACTIONS (3)
  - Hypothyroidism [Recovering/Resolving]
  - Ileus paralytic [Recovering/Resolving]
  - Leukocytosis [Unknown]

NARRATIVE: CASE EVENT DATE: 2016
